FAERS Safety Report 5734193-0 (Version None)
Quarter: 2008Q2

REPORT INFORMATION
  Report Type: 
  Country: None (occurrence: None)
  Receive Date: 20080510
  Receipt Date: 20080428
  Transmission Date: 20081010
  Serious: Yes (Other)
  Sender: FDA-Public Use
  Company Number: PHHY2008BR06027

PATIENT
  Sex: Female

DRUGS (1)
  1. METHERGINE [Suspect]
     Indication: ABORTION
     Dosage: UNK, Q8H
     Route: 048
     Dates: start: 20080404, end: 20080417

REACTIONS (4)
  - DIARRHOEA [None]
  - INDUCED ABORTION FAILED [None]
  - PAIN IN EXTREMITY [None]
  - UTERINE DILATION AND CURETTAGE [None]
